FAERS Safety Report 17606026 (Version 1)
Quarter: 2020Q1

REPORT INFORMATION
  Report Type: Other
  Country: ES (occurrence: ES)
  Receive Date: 20200331
  Receipt Date: 20200331
  Transmission Date: 20200409
  Serious: Yes (Other)
  Sender: FDA-Public Use
  Company Number: ES-COLLEGIUM PHARMACEUTICAL, INC.-ES-2020COL000296

PATIENT
  Age: 60 Year
  Sex: Female

DRUGS (8)
  1. LYRICA [Suspect]
     Active Substance: PREGABALIN
     Indication: NEURALGIA
     Dosage: 75 MG, TID
     Route: 048
     Dates: start: 2018
  2. TAPENTADOL [Suspect]
     Active Substance: TAPENTADOL
     Dosage: 50 MG, BID
     Route: 065
  3. LYRICA [Suspect]
     Active Substance: PREGABALIN
     Dosage: 150 MG, TID
     Dates: start: 2013
  4. LYRICA [Suspect]
     Active Substance: PREGABALIN
     Dosage: 75 MG, BID
     Dates: end: 20200108
  5. LEVOTHROID [Concomitant]
     Active Substance: LEVOTHYROXINE SODIUM
     Indication: PRODUCT USED FOR UNKNOWN INDICATION
     Route: 065
  6. CANDESARTAN. [Concomitant]
     Active Substance: CANDESARTAN
     Indication: PRODUCT USED FOR UNKNOWN INDICATION
     Route: 065
  7. TAPENTADOL [Suspect]
     Active Substance: TAPENTADOL
     Indication: NEURALGIA
     Dosage: 150 MG, TID
     Route: 065
     Dates: start: 2013
  8. TAPENTADOL [Suspect]
     Active Substance: TAPENTADOL
     Dosage: 100 MG, BID
     Route: 065
     Dates: start: 2018

REACTIONS (3)
  - Viral infection [Recovered/Resolved]
  - Withdrawal syndrome [Unknown]
  - Leukopenia [Recovered/Resolved]

NARRATIVE: CASE EVENT DATE: 201911
